FAERS Safety Report 17823507 (Version 1)
Quarter: 2020Q2

REPORT INFORMATION
  Report Type: Other
  Country: DE (occurrence: DE)
  Receive Date: 20200526
  Receipt Date: 20200526
  Transmission Date: 20200714
  Serious: No
  Sender: FDA-Public Use
  Company Number: DE-LUPIN PHARMACEUTICALS INC.-2020-01901

PATIENT
  Age: 73 Year
  Sex: Male
  Weight: 88 kg

DRUGS (4)
  1. EZETIMIBE. [Suspect]
     Active Substance: EZETIMIBE
     Indication: HYPERCHOLESTEROLAEMIA
     Dosage: 10 MILLIGRAM, UNK
     Route: 048
     Dates: start: 201912
  2. ROSUVASTATIN. [Suspect]
     Active Substance: ROSUVASTATIN
     Indication: HYPERCHOLESTEROLAEMIA
     Dosage: 5 MILLIGRAM, UNK
     Route: 048
     Dates: start: 2018
  3. ATORVASTATIN CALCIUM. [Suspect]
     Active Substance: ATORVASTATIN CALCIUM
     Indication: HYPERCHOLESTEROLAEMIA
     Dosage: 10 MILLIGRAM, UNK
     Route: 048
     Dates: start: 2018
  4. SIMVASTATIN. [Suspect]
     Active Substance: SIMVASTATIN
     Indication: HYPERCHOLESTEROLAEMIA
     Dosage: 20 MILLIGRAM, UNK
     Route: 048
     Dates: start: 2018

REACTIONS (3)
  - Dizziness [Recovered/Resolved]
  - Aggression [Recovered/Resolved]
  - Myalgia [Recovered/Resolved]
